FAERS Safety Report 23960541 (Version 1)
Quarter: 2024Q2

REPORT INFORMATION
  Report Type: Spontaneous
  Country: DE (occurrence: DE)
  Receive Date: 20240611
  Receipt Date: 20240611
  Transmission Date: 20240716
  Serious: Yes (Other)
  Sender: FDA-Public Use
  Company Number: DE-DPT-20192801

PATIENT
  Age: 52 Year
  Sex: Female

DRUGS (15)
  1. RAMIPRIL [Suspect]
     Active Substance: RAMIPRIL
     Indication: Product used for unknown indication
     Dosage: 1-0-1
     Route: 065
     Dates: start: 20190701
  2. PANTOPRAZOLE [Suspect]
     Active Substance: PANTOPRAZOLE
     Indication: Product used for unknown indication
     Dosage: 40 MILLIGRAM, DAILY
     Route: 065
  3. ESTRIOL [Suspect]
     Active Substance: ESTRIOL
     Indication: Product used for unknown indication
     Dosage: 1 MG
     Route: 065
  4. OCREVUS [Suspect]
     Active Substance: OCRELIZUMAB
     Indication: Relapsing-remitting multiple sclerosis
     Dosage: 600 MG; FREQUENCY: 176 DAYS
     Route: 040
     Dates: start: 20180523
  5. FORMOTEROL FUMARATE [Suspect]
     Active Substance: FORMOTEROL FUMARATE
     Indication: Product used for unknown indication
     Dosage: UNK
     Route: 065
  6. SUMATRIPTAN [Suspect]
     Active Substance: SUMATRIPTAN
     Indication: Product used for unknown indication
     Route: 045
  7. DEMANNOSE [Suspect]
     Active Substance: DEMANNOSE
     Indication: Product used for unknown indication
     Dosage: 1 DOSAGE FORM, DAILY
     Route: 065
  8. DOMPERIDONE [Suspect]
     Active Substance: DOMPERIDONE
     Indication: Product used for unknown indication
     Dosage: IF NECESSARY
     Route: 065
  9. IBUPROFEN [Suspect]
     Active Substance: IBUPROFEN
     Indication: Product used for unknown indication
     Dosage: UNK
     Route: 065
  10. TRIAMCINOLONE ACETONIDE [Suspect]
     Active Substance: TRIAMCINOLONE ACETONIDE
     Indication: Relapsing-remitting multiple sclerosis
     Dosage: 70 MG ONCE EVERY 3 WEEKS INJECTION INTO THE CEREBROSPINAL FLUID; LAST INJECTION: 11.09.2019
     Route: 065
  11. CHOLECALCIFEROL [Suspect]
     Active Substance: CHOLECALCIFEROL
     Indication: Product used for unknown indication
     Dosage: 20000 INTERNATIONAL UNIT, 1/WEEK
     Route: 065
  12. TRIAMCINOLONE ACETONIDE [Suspect]
     Active Substance: TRIAMCINOLONE ACETONIDE
     Indication: Relapsing-remitting multiple sclerosis
     Dosage: 70 MG ONCE EVERY 3 WEEKS INJECTION INTO THE CEREBROSPINAL FLUID; LAST INJECTION: 11.09.2019
     Route: 065
  13. NABIXIMOLS [Suspect]
     Active Substance: NABIXIMOLS
     Indication: Product used for unknown indication
     Dosage: IF NECESSARY
     Route: 065
  14. NOVALGIN (METAMIZOLE SODIUM) [Suspect]
     Active Substance: METAMIZOLE SODIUM
     Indication: Product used for unknown indication
     Dosage: IF NECESSARY
     Route: 065
  15. ACETAMINOPHEN [Suspect]
     Active Substance: ACETAMINOPHEN
     Indication: Product used for unknown indication
     Dosage: IF NECESSARY
     Route: 065

REACTIONS (14)
  - Urinary tract infection [Recovered/Resolved]
  - Fatigue [Not Recovered/Not Resolved]
  - Off label use [Unknown]
  - Generalised oedema [Recovering/Resolving]
  - Alopecia [Not Recovered/Not Resolved]
  - Product use in unapproved indication [Unknown]
  - Drug ineffective [Unknown]
  - Dry skin [Not Recovered/Not Resolved]
  - Initial insomnia [Not Recovered/Not Resolved]
  - Product use issue [Unknown]
  - Back pain [Recovering/Resolving]
  - Blood pressure increased [Not Recovered/Not Resolved]
  - Oedema peripheral [Recovered/Resolved]
  - Swelling [Not Recovered/Not Resolved]

NARRATIVE: CASE EVENT DATE: 20190629
